FAERS Safety Report 18819644 (Version 1)
Quarter: 2021Q1

REPORT INFORMATION
  Report Type: Other
  Country: GB (occurrence: GB)
  Receive Date: 20210202
  Receipt Date: 20210202
  Transmission Date: 20210419
  Serious: Yes (Hospitalization)
  Sender: FDA-Public Use
  Company Number: GB-CELLTRION INC.-2021GB000874

PATIENT

DRUGS (23)
  1. BALNEUM PLUS [Concomitant]
     Dosage: PHARMACEUTICAL DOSE FORM: 17
  2. DERMOL [Concomitant]
     Active Substance: BENZALKONIUM CHLORIDE\CHLORHEXIDINE HYDROCHLORIDE\ISOPROPYL MYRISTATE\PARAFFIN
     Dosage: AS NECESSARY; PHARMACEUTICAL DOSE FORM: 17
  3. HYDROMOL [Concomitant]
     Dosage: PHARMACEUTICAL DOSE FORM (FREE TEXT): 156
  4. CITALOPRAM [Concomitant]
     Active Substance: CITALOPRAM HYDROBROMIDE
     Dosage: 10 MG, 1/DAY
  5. CLENIL MODULITE [Concomitant]
     Active Substance: BECLOMETHASONE DIPROPIONATE
     Dosage: PUFFS
  6. ORAMORPH [Concomitant]
     Active Substance: MORPHINE SULFATE
     Dosage: 10MG/5ML
  7. CALCIPOTRIOL [Concomitant]
     Active Substance: CALCIPOTRIENE
     Dosage: MORNING, PHARMACEUTICAL DOSE FORM (FREE TEXT): 156
  8. FOLIC ACID. [Concomitant]
     Active Substance: FOLIC ACID
     Dosage: 5 MG, 1/DAY, IN THE MORNING
  9. SALBUTAMOL [Concomitant]
     Active Substance: ALBUTEROL
     Dosage: AS NECESSARY
  10. OILATUM [Concomitant]
     Dosage: PHARMACEUTICAL DOSE FORM (FREE TEXT): 17
  11. CAPASAL [Concomitant]
     Dosage: PHARMACEUTICAL DOSE FORM (FREE TEXT): 225
  12. INFLIXIMAB (UNKNOWN) [Suspect]
     Active Substance: INFLIXIMAB
     Indication: PRODUCT USED FOR UNKNOWN INDICATION
  13. DAKTACORT [Concomitant]
     Active Substance: HYDROCORTISONE\MICONAZOLE NITRATE
     Dosage: TWICE DAILY; PHARMACEUTICAL DOSE FORM: 17
  14. CHLORPHENAMINE [Concomitant]
     Active Substance: CHLORPHENIRAMINE MALEATE
     Dosage: FOUR TIMES A DAY
  15. PARAFFIN WHITE SOFT [Concomitant]
     Dosage: 2?3 HOURLY, 50/50, PHARMACEUTICAL DOSE FORM: 156
  16. REMSIMA [Suspect]
     Active Substance: INFLIXIMAB
     Indication: PRODUCT USED FOR UNKNOWN INDICATION
  17. ADCAL D3 [Concomitant]
     Active Substance: CALCIUM CARBONATE\CHOLECALCIFEROL
     Dosage: 2 DF, QD
  18. ALENDRONIC ACID [Concomitant]
     Active Substance: ALENDRONIC ACID
     Dosage: 70 MG, 1/WEEK
  19. SALBUTAMOL [Concomitant]
     Active Substance: ALBUTEROL
     Dosage: PUFFS, UP FOUR TIMES A DAY
  20. CHLORPHENAMINE [Concomitant]
     Active Substance: CHLORPHENIRAMINE MALEATE
     Dosage: 4?6 HOURLY
  21. DOVOBET [Concomitant]
     Active Substance: BETAMETHASONE\CALCIPOTRIENE
     Dosage: PHARMACEUTICAL DOSE FORM (FREE TEXT): 95
  22. FUROSEMIDE. [Concomitant]
     Active Substance: FUROSEMIDE
     Dosage: IN THE MORNING
  23. COCODAMOL [Concomitant]
     Active Substance: ACETAMINOPHEN\CODEINE PHOSPHATE
     Dosage: 30/500MG. 1?2 UP TO 4 TIMES A DAY

REACTIONS (3)
  - Pyrexia [Unknown]
  - Palpitations [Unknown]
  - Tremor [Unknown]
